FAERS Safety Report 22325500 (Version 9)
Quarter: 2024Q1

REPORT INFORMATION
  Report Type: Spontaneous
  Country: US (occurrence: US)
  Receive Date: 20230516
  Receipt Date: 20240112
  Transmission Date: 20240410
  Serious: No
  Sender: FDA-Public Use
  Company Number: US-PFIZER INC-PV202300084340

PATIENT
  Age: 77 Year
  Sex: Female
  Weight: 63.492 kg

DRUGS (3)
  1. IBRANCE [Suspect]
     Active Substance: PALBOCICLIB
     Indication: Hypercoagulation
     Dosage: ONCE DAILY X 3 WEEKS, ONE WEEK OFF
     Route: 048
  2. IBRANCE [Suspect]
     Active Substance: PALBOCICLIB
     Indication: Iron deficiency anaemia
  3. IBRANCE [Suspect]
     Active Substance: PALBOCICLIB
     Indication: Breast cancer stage IV

REACTIONS (2)
  - Cough [Unknown]
  - Dysphonia [Unknown]
